FAERS Safety Report 21628705 (Version 7)
Quarter: 2023Q2

REPORT INFORMATION
  Report Type: Report from Study
  Country: US (occurrence: US)
  Receive Date: 20221122
  Receipt Date: 20230606
  Transmission Date: 20230721
  Serious: Yes (Other)
  Sender: FDA-Public Use
  Company Number: US-ABBVIE-22K-163-4446288-00

PATIENT
  Sex: Male
  Weight: 91 kg

DRUGS (11)
  1. IMBRUVICA [Suspect]
     Active Substance: IBRUTINIB
     Indication: Waldenstrom^s macroglobulinaemia
     Dosage: FORM STRENGTH: 420 MG, DRUG START DATE - MAR 2020
     Route: 048
  2. GABAPENTIN [Concomitant]
     Active Substance: GABAPENTIN
     Indication: Dysuria
     Dates: start: 2020
  3. MELOXICAM [Concomitant]
     Active Substance: MELOXICAM
     Indication: Pain in extremity
     Route: 065
     Dates: end: 2023
  4. VALSARTAN [Concomitant]
     Active Substance: VALSARTAN
     Indication: Hypertension
  5. VIIBRYD [Concomitant]
     Active Substance: VILAZODONE HYDROCHLORIDE
     Indication: Depression
     Dosage: VIVRYD
  6. LEVOMEFOLIC ACID [Concomitant]
     Active Substance: LEVOMEFOLIC ACID
     Indication: Adjuvant therapy
     Dosage: L-MELHYLFOLATE
  7. TRAZODONE [Concomitant]
     Active Substance: TRAZODONE HYDROCHLORIDE
     Indication: Sleep disorder therapy
  8. AMLODIPINE [Concomitant]
     Active Substance: AMLODIPINE BESYLATE
     Indication: Hypertension
  9. MODAFINIL [Concomitant]
     Active Substance: MODAFINIL
     Indication: Mood altered
  10. LEVOTHYROXINE [Concomitant]
     Active Substance: LEVOTHYROXINE
     Indication: Thyroid disorder
  11. REXULTI [Concomitant]
     Active Substance: BREXPIPRAZOLE
     Indication: Mood altered

REACTIONS (9)
  - Rotator cuff syndrome [Recovering/Resolving]
  - Weight increased [Not Recovered/Not Resolved]
  - Neuropathy peripheral [Not Recovered/Not Resolved]
  - Weight decreased [Recovered/Resolved]
  - Drug hypersensitivity [Unknown]
  - Loss of consciousness [Unknown]
  - Dysuria [Recovered/Resolved]
  - Muscle spasms [Not Recovered/Not Resolved]
  - Alanine aminotransferase increased [Not Recovered/Not Resolved]

NARRATIVE: CASE EVENT DATE: 20200101
